FAERS Safety Report 6541070-4 (Version None)
Quarter: 2010Q1

REPORT INFORMATION
  Report Type: 
  Country: None (occurrence: None)
  Receive Date: 20100118
  Receipt Date: 20091116
  Transmission Date: 20100710
  Serious: No
  Sender: FDA-Public Use
  Company Number: US-JNJFOC-20091004071

PATIENT
  Sex: Female

DRUGS (3)
  1. INVEGA SUSTENNA [Suspect]
     Indication: MAJOR DEPRESSION
     Route: 030
     Dates: start: 20091008
  2. ZYPREXA [Concomitant]
     Indication: MAJOR DEPRESSION
  3. FLUPHENAZINE [Concomitant]
     Indication: MAJOR DEPRESSION
     Route: 030

REACTIONS (1)
  - DYSTONIA [None]
